FAERS Safety Report 9883326 (Version 1)
Quarter: 2014Q1

REPORT INFORMATION
  Report Type: Report from Study
  Country: US (occurrence: US)
  Receive Date: 20140210
  Receipt Date: 20140210
  Transmission Date: 20141002
  Serious: Yes (Other)
  Sender: FDA-Public Use
  Company Number: US-ROCHE-1342991

PATIENT
  Sex: Female

DRUGS (4)
  1. LUCENTIS [Suspect]
     Indication: AGE-RELATED MACULAR DEGENERATION
     Dosage: RIGHT EYE
     Route: 065
  2. BENICAR [Concomitant]
     Indication: BLOOD PRESSURE
  3. SERTRALINE [Concomitant]
  4. PROPRANOLOL [Concomitant]
     Indication: TREMOR

REACTIONS (4)
  - Thrombosis [Unknown]
  - Eye haemorrhage [Unknown]
  - Visual impairment [Unknown]
  - Hearing impaired [Unknown]
